FAERS Safety Report 9957631 (Version 2)
Quarter: 2014Q1

REPORT INFORMATION
  Report Type: Report from Study
  Country: US (occurrence: US)
  Receive Date: 20140304
  Receipt Date: 20140304
  Transmission Date: 20141002
  Serious: No
  Sender: FDA-Public Use
  Company Number: US-ABBVIE-13P-163-1035801-00

PATIENT
  Age: 56 Year
  Sex: Male

DRUGS (10)
  1. HUMIRA [Suspect]
     Indication: RHEUMATOID ARTHRITIS
     Route: 058
     Dates: start: 20121205
  2. AZASAN [Concomitant]
     Indication: CROHN^S DISEASE
     Dosage: 175MG DAILY
  3. COLAZAL [Concomitant]
     Indication: CROHN^S DISEASE
     Dosage: 9 DAILY
  4. PROZAC [Concomitant]
     Indication: DEPRESSION
     Dosage: 60MG DAILY
  5. WELLBUTRIN [Concomitant]
     Indication: DEPRESSION
     Dosage: 150MG DAILY
  6. BYSTOLIC [Concomitant]
     Indication: HYPERTENSION
     Dosage: 12.5MG DAILY
  7. DIOVAN WITH HCTZ [Concomitant]
     Indication: HYPERTENSION
     Dosage: 80MG/12.5MG DAILY
  8. OMEPRAZOLE [Concomitant]
     Indication: GASTROOESOPHAGEAL REFLUX DISEASE
     Dosage: 40MG DAILY
  9. ATIVAN [Concomitant]
     Indication: ANXIETY
  10. FIORICET [Concomitant]
     Indication: PAIN

REACTIONS (1)
  - Drug ineffective [Unknown]
